FAERS Safety Report 11854018 (Version 1)
Quarter: 2015Q4

REPORT INFORMATION
  Report Type: Spontaneous
  Country: US (occurrence: US)
  Receive Date: 20151219
  Receipt Date: 20151219
  Transmission Date: 20160305
  Serious: Yes (Other)
  Sender: FDA-Public Use
  Company Number: US-JNJFOC-20151205363

PATIENT

DRUGS (1)
  1. LISTERINE TOTAL CARE ZERO FRESH MINT [Suspect]
     Active Substance: SODIUM FLUORIDE
     Indication: PRODUCT USED FOR UNKNOWN INDICATION
     Route: 048

REACTIONS (5)
  - Oral mucosal exfoliation [Unknown]
  - Burn oral cavity [Unknown]
  - Adverse event [Unknown]
  - Glossodynia [Unknown]
  - Dysgeusia [Unknown]
